FAERS Safety Report 9000493 (Version 1)
Quarter: 2013Q1

REPORT INFORMATION
  Report Type: Spontaneous
  Country: US (occurrence: None)
  Receive Date: 20130102
  Receipt Date: 20130102
  Transmission Date: 20140127
  Serious: Yes (Hospitalization)
  Sender: FDA-Public Use
  Company Number: None

PATIENT
  Age: 93 Year
  Sex: Male
  Weight: 77.1 kg

DRUGS (1)
  1. MOMETASONE [Suspect]
     Indication: CHRONIC OBSTRUCTIVE PULMONARY DISEASE
     Dosage: 1 PUFF(S) EVERY DAY INHALE
     Route: 055
     Dates: start: 20110512

REACTIONS (3)
  - Dyspnoea [None]
  - Condition aggravated [None]
  - Haemoptysis [None]
